FAERS Safety Report 8371015-6 (Version None)
Quarter: 2012Q2

REPORT INFORMATION
  Report Type: 
  Country: None (occurrence: None)
  Receive Date: 20120518
  Receipt Date: 20120508
  Transmission Date: 20120825
  Serious: Yes (Other)
  Sender: FDA-Public Use
  Company Number: US-JNJFOC-20120314247

PATIENT
  Sex: Female
  Weight: 55.79 kg

DRUGS (10)
  1. REMICADE [Suspect]
     Route: 042
     Dates: start: 20081231
  2. TYLENOL W/ CODEINE NO. 3 [Concomitant]
     Indication: PAIN
  3. REMICADE [Suspect]
     Route: 042
     Dates: start: 20081103
  4. REMICADE [Suspect]
     Route: 042
     Dates: start: 20050412
  5. REMICADE [Suspect]
     Route: 042
     Dates: start: 20080909
  6. TYLENOL W/ CODEINE NO. 3 [Concomitant]
     Indication: DIARRHOEA
  7. FLOVENT [Concomitant]
     Indication: ASTHMA
  8. MERCAPTOPURINE [Concomitant]
     Indication: CROHN'S DISEASE
     Dosage: WAS ION AND OFF SIINCE 1995
     Dates: start: 19950101, end: 20080101
  9. REMICADE [Suspect]
     Indication: CROHN'S DISEASE
     Route: 042
     Dates: start: 20070126, end: 20080715
  10. PREVENTIL [Concomitant]
     Indication: ASTHMA

REACTIONS (1)
  - BREAST CANCER IN SITU [None]
